FAERS Safety Report 24428199 (Version 5)
Quarter: 2025Q1

REPORT INFORMATION
  Report Type: Spontaneous
  Country: JP (occurrence: JP)
  Receive Date: 20241011
  Receipt Date: 20250123
  Transmission Date: 20250409
  Serious: Yes (Hospitalization, Other)
  Sender: ALEXION PHARMACEUTICALS
  Company Number: JP-ASTRAZENECA-240106974_063010_P_1

PATIENT
  Age: 80 Year
  Weight: 50 kg

DRUGS (15)
  1. DAPAGLIFLOZIN [Suspect]
     Active Substance: DAPAGLIFLOZIN
     Indication: Type 2 diabetes mellitus
     Dosage: 03 MILLIGRAM, QD
  2. SPIRONOLACTONE [Suspect]
     Active Substance: SPIRONOLACTONE
     Dosage: 25 MILLIGRAM, QD
  3. SPIRONOLACTONE [Suspect]
     Active Substance: SPIRONOLACTONE
  4. AMLODIPINE\TELMISARTAN [Concomitant]
     Active Substance: AMLODIPINE\TELMISARTAN
  5. AMLODIPINE\TELMISARTAN [Concomitant]
     Active Substance: AMLODIPINE\TELMISARTAN
  6. ROSUVASTATIN CALCIUM [Concomitant]
     Active Substance: ROSUVASTATIN CALCIUM
  7. ROSUVASTATIN CALCIUM [Concomitant]
     Active Substance: ROSUVASTATIN CALCIUM
  8. BROTIZOLAM [Concomitant]
     Active Substance: BROTIZOLAM
  9. BROTIZOLAM [Concomitant]
     Active Substance: BROTIZOLAM
  10. EDOXABAN TOSYLATE [Concomitant]
     Active Substance: EDOXABAN TOSYLATE
  11. EDOXABAN TOSYLATE [Concomitant]
     Active Substance: EDOXABAN TOSYLATE
  12. AZOSEMIDE [Concomitant]
     Active Substance: AZOSEMIDE
  13. AZOSEMIDE [Concomitant]
     Active Substance: AZOSEMIDE
  14. CARVEDILOL [Concomitant]
     Active Substance: CARVEDILOL
  15. CARVEDILOL [Concomitant]
     Active Substance: CARVEDILOL

REACTIONS (2)
  - Lacunar infarction [Recovering/Resolving]
  - Dehydration [Recovered/Resolved]
